FAERS Safety Report 4268862-9 (Version None)
Quarter: 2004Q1

REPORT INFORMATION
  Report Type: 
  Country: None (occurrence: None)
  Receive Date: 20040108
  Receipt Date: 20040501
  Transmission Date: 20041129
  Serious: Yes (Hospitalization)
  Sender: FDA-Public Use
  Company Number: 2004UW00040

PATIENT
  Age: 42 Year
  Sex: Male

DRUGS (1)
  1. CANDESARTAN [Suspect]

REACTIONS (1)
  - PYELONEPHRITIS [None]
